FAERS Safety Report 13482786 (Version 2)
Quarter: 2018Q1

REPORT INFORMATION
  Report Type: Report from Study
  Country: US (occurrence: US)
  Receive Date: 20170426
  Receipt Date: 20180124
  Transmission Date: 20180508
  Serious: Yes (Other)
  Sender: FDA-Public Use
  Company Number: US-ASTRAZENECA-2017SE40749

PATIENT
  Age: 26248 Day
  Sex: Male

DRUGS (14)
  1. VITAMIN D [Concomitant]
     Active Substance: CHOLECALCIFEROL
     Dosage: TAKE 2,000 UNITS BY MOUTH DAILY.
  2. ANAPROX [Concomitant]
     Active Substance: NAPROXEN SODIUM
     Indication: PAIN IN JAW
     Dosage: TAKE 220 MG BY MOUTH 2 TIMES DAILY
  3. LIPITOR [Concomitant]
     Active Substance: ATORVASTATIN CALCIUM
     Dosage: TAKE 1 TABLET BY MOUTH DAILY.
  4. ZOFRAN [Concomitant]
     Active Substance: ONDANSETRON HYDROCHLORIDE
     Indication: NAUSEA
     Dosage: TAKE 1 TABLET BY MOUTH EVERY 8 HOURS AS NEEDED FOR UP TO 40 DOSES
  5. LYNPARZA [Suspect]
     Active Substance: OLAPARIB
     Indication: PROSTATE CANCER
     Route: 048
     Dates: start: 20170424
  6. DECADRON [Concomitant]
     Active Substance: DEXAMETHASONE
     Dosage: TAKE 2 TABS 12 HRS AND 3 PRIOR TO DOCETAXEL CHEMOTHERAPY
  7. CALCIUM + D [Concomitant]
     Active Substance: CALCIUM\VITAMIN D
     Dosage: TAKE BY MOUTH
  8. CASODEX [Suspect]
     Active Substance: BICALUTAMIDE
     Route: 048
  9. ANAPROX [Concomitant]
     Active Substance: NAPROXEN SODIUM
     Indication: PAIN
     Dosage: TAKE 220 MG BY MOUTH 2 TIMES DAILY
  10. TRILIPIX [Concomitant]
     Active Substance: FENOFIBRIC ACID
     Dosage: TAKE 1 TABLET BY MOUTH DAILY.
  11. COENZYME Q10 [Concomitant]
     Active Substance: UBIDECARENONE
     Dosage: TAKE 1 CAPSULE BY MOUTH DALLY.
  12. METFORMIN HYDROCHLORIDE. [Concomitant]
     Active Substance: METFORMIN HYDROCHLORIDE
     Dosage: TAKE 500 MG BY MOUTH 2 TIMES DAILY.
     Route: 048
  13. TAMSULOSIN HYDROCHLORIDE. [Concomitant]
     Active Substance: TAMSULOSIN HYDROCHLORIDE
     Dosage: TAKE 0.4 MG BY MOUTH 2 TIMES DAILY.
  14. ASPIRIN. [Concomitant]
     Active Substance: ASPIRIN
     Dosage: TAKE 81 MG BY MOUTH DAILY

REACTIONS (41)
  - Intracranial mass [Unknown]
  - Fall [Unknown]
  - Bronchitis [Unknown]
  - Hepatic steatosis [Unknown]
  - Paraesthesia [Unknown]
  - Gynaecomastia [Unknown]
  - Abnormal loss of weight [Unknown]
  - Muscle tightness [Unknown]
  - Atelectasis [Unknown]
  - Aortic arteriosclerosis [Unknown]
  - Musculoskeletal pain [Unknown]
  - Metastases to bone [Unknown]
  - Fatigue [Unknown]
  - Alopecia [Unknown]
  - Night sweats [Unknown]
  - Diarrhoea [Unknown]
  - Skin lesion [Unknown]
  - Decreased appetite [Unknown]
  - Dizziness [Recovered/Resolved]
  - Constipation [Unknown]
  - Flank pain [Unknown]
  - Impaired healing [Unknown]
  - Nausea [Unknown]
  - Hot flush [Unknown]
  - Meningioma [Unknown]
  - Muscle spasms [Unknown]
  - Nasopharyngitis [Unknown]
  - Ageusia [Unknown]
  - Diverticulum intestinal [Unknown]
  - Back pain [Unknown]
  - Ligament rupture [Unknown]
  - Metastases to lung [Unknown]
  - Osteopenia [Unknown]
  - Temporomandibular joint syndrome [Unknown]
  - Peripheral swelling [Unknown]
  - Musculoskeletal stiffness [Unknown]
  - Off label use [Unknown]
  - Product use in unapproved indication [Unknown]
  - Malignant neoplasm progression [Unknown]
  - Spinal osteoarthritis [Unknown]
  - Rib fracture [Unknown]

NARRATIVE: CASE EVENT DATE: 20130617
